FAERS Safety Report 8552914-9 (Version None)
Quarter: 2012Q3

REPORT INFORMATION
  Report Type: 
  Country: None (occurrence: None)
  Receive Date: 20120731
  Receipt Date: 20120725
  Transmission Date: 20120928
  Serious: No
  Sender: FDA-Public Use
  Company Number: US-BAYER-2012-075925

PATIENT
  Age: 29 Year
  Sex: Female

DRUGS (1)
  1. MIRENA [Suspect]
     Indication: CONTRACEPTION
     Dosage: 20 MCG/24HR, CONT
     Route: 015
     Dates: start: 20120601, end: 20120101

REACTIONS (6)
  - PELVIC PAIN [None]
  - FEELING JITTERY [None]
  - BACK PAIN [None]
  - NAUSEA [None]
  - HEADACHE [None]
  - VOMITING [None]
